FAERS Safety Report 9011759 (Version 1)
Quarter: 2012Q4

REPORT INFORMATION
  Report Type: Spontaneous
  Country: US (occurrence: None)
  Receive Date: 20121228
  Receipt Date: 20121228
  Transmission Date: 20130627
  Serious: Yes (Hospitalization, Other)
  Sender: FDA-Public Use
  Company Number: 2012MA014240

PATIENT
  Age: 49 Year
  Sex: Female

DRUGS (3)
  1. SPIRONOLACTONE TABLETS USP, 100 MG (PUREPAC) [Suspect]
     Indication: DRUG USE FOR UNKNOWN INDICATION
  2. COPAXONE [Suspect]
     Indication: MULTIPLE SCLEROSIS
     Dates: start: 20120115
  3. POTASSIUM [Suspect]
     Indication: DRUG USE FOR UNKNOWN INDICATION

REACTIONS (6)
  - Myocardial infarction [None]
  - Overdose [None]
  - Blood potassium increased [None]
  - Fatigue [None]
  - Asthenia [None]
  - Medication error [None]
